FAERS Safety Report 6170490-5 (Version None)
Quarter: 2009Q2

REPORT INFORMATION
  Report Type: 
  Country: None (occurrence: None)
  Receive Date: 20090428
  Receipt Date: 20090414
  Transmission Date: 20091009
  Serious: Yes (Hospitalization, Other)
  Sender: FDA-Public Use
  Company Number: SE-CELGENEUS-150-20484-09021672

PATIENT
  Sex: Female

DRUGS (5)
  1. INNOHEP [Suspect]
     Indication: PROPHYLAXIS
     Dosage: 3500-4000 U ONCE
     Route: 058
     Dates: start: 20081028
  2. ACETAMINOPHEN [Concomitant]
     Indication: DRUG USE FOR UNKNOWN INDICATION
     Route: 065
  3. DEXOFEN [Concomitant]
     Indication: DRUG USE FOR UNKNOWN INDICATION
     Route: 065
  4. DIGOXIN [Concomitant]
     Indication: ATRIAL FIBRILLATION
     Route: 065
  5. SELOKEN [Concomitant]
     Indication: ATRIAL FIBRILLATION
     Route: 065

REACTIONS (3)
  - DRUG DOSE OMISSION [None]
  - DRUG INEFFECTIVE [None]
  - PULMONARY EMBOLISM [None]
